FAERS Safety Report 5092570-8 (Version None)
Quarter: 2006Q3

REPORT INFORMATION
  Report Type: 
  Country: None (occurrence: None)
  Receive Date: 20060830
  Receipt Date: 20060821
  Transmission Date: 20061208
  Serious: Yes (Hospitalization)
  Sender: FDA-Public Use
  Company Number: FR-AVENTIS-200612883FR

PATIENT
  Age: 51 Year
  Sex: Male

DRUGS (1)
  1. ARAVA [Suspect]
     Indication: PSORIATIC ARTHROPATHY
     Route: 048
     Dates: start: 20060519, end: 20060720

REACTIONS (4)
  - FOOD AVERSION [None]
  - NEUROPATHY [None]
  - PARAESTHESIA [None]
  - WEIGHT DECREASED [None]
